FAERS Safety Report 24982937 (Version 1)
Quarter: 2025Q1

REPORT INFORMATION
  Report Type: Spontaneous
  Country: JP (occurrence: JP)
  Receive Date: 20250218
  Receipt Date: 20250218
  Transmission Date: 20250409
  Serious: Yes (Other)
  Sender: MALLINCKRODT
  Company Number: JP-MALLINCKRODT-MNK202500887

PATIENT
  Age: 3 Decade
  Sex: Male

DRUGS (2)
  1. UVADEX [Suspect]
     Active Substance: METHOXSALEN
     Indication: Chronic graft versus host disease in skin
     Route: 050
  2. ELTROMBOPAG [Concomitant]
     Active Substance: ELTROMBOPAG
     Indication: Thrombocytopenia

REACTIONS (4)
  - Chronic graft versus host disease in skin [Unknown]
  - Disease recurrence [Unknown]
  - Haemolysis [Unknown]
  - Jaundice [Unknown]
